FAERS Safety Report 4880668-6 (Version None)
Quarter: 2006Q1

REPORT INFORMATION
  Report Type: 
  Country: None (occurrence: None)
  Receive Date: 20060113
  Receipt Date: 20050915
  Transmission Date: 20060701
  Serious: Yes (Hospitalization)
  Sender: FDA-Public Use
  Company Number: US-MERCK-0509USA02472

PATIENT
  Age: 54 Year
  Sex: Female
  Weight: 87 kg

DRUGS (25)
  1. VIOXX [Suspect]
     Indication: OSTEOARTHRITIS
     Route: 048
     Dates: start: 19990824, end: 20040930
  2. VIOXX [Suspect]
     Route: 048
  3. VIOXX [Suspect]
     Indication: FIBROMYALGIA
     Route: 048
     Dates: start: 19990824, end: 20040930
  4. VIOXX [Suspect]
     Route: 048
  5. ZOLOFT [Concomitant]
     Indication: DEPRESSION
     Route: 048
     Dates: start: 20000424
  6. ZOLOFT [Concomitant]
     Indication: FIBROMYALGIA
     Route: 048
     Dates: start: 20000424
  7. AVAPRO [Concomitant]
     Route: 065
  8. MAXZIDE [Concomitant]
     Route: 065
  9. EFFEXOR [Concomitant]
     Route: 048
  10. BENTYL [Concomitant]
     Route: 048
  11. ATENOLOL [Concomitant]
     Indication: HYPERTENSION
     Route: 065
     Dates: start: 20000807, end: 20020201
  12. ZESTRIL [Concomitant]
     Indication: HYPERTENSION
     Route: 065
     Dates: start: 19990701, end: 20020101
  13. AVALIDE [Concomitant]
     Indication: HYPERTENSION
     Route: 065
     Dates: start: 20020820, end: 20030201
  14. ELAVIL [Concomitant]
     Indication: DEPRESSION
     Route: 065
     Dates: start: 20000801, end: 20000101
  15. CHONDROITIN SULFATE SODIUM AND GLUCOSAMINE HYDROCHLORIDE AND MANGANESE [Concomitant]
     Route: 065
  16. ZESTORETIC [Concomitant]
     Route: 065
     Dates: start: 20020318, end: 20020820
  17. FLEXERIL [Concomitant]
     Route: 065
  18. LOMOTIL [Concomitant]
     Route: 065
  19. FERROUS SULFATE [Concomitant]
     Route: 065
  20. VEETIDS [Concomitant]
     Route: 065
  21. DOXYCYCLINE [Concomitant]
     Route: 065
  22. DECADRON (DEXAMETHASONE ACETATE) [Concomitant]
     Route: 065
  23. PREDNISONE [Concomitant]
     Route: 065
  24. ERYTHROMYCIN [Concomitant]
     Route: 065
  25. SKELAXIN [Concomitant]
     Route: 065

REACTIONS (26)
  - ABDOMINAL PAIN [None]
  - ACTINIC KERATOSIS [None]
  - ANGINA UNSTABLE [None]
  - CARDIAC FAILURE CONGESTIVE [None]
  - CARDIOMEGALY [None]
  - CHEST PAIN [None]
  - CHRONIC OBSTRUCTIVE PULMONARY DISEASE [None]
  - CORONARY ARTERY DISEASE [None]
  - CORONARY ARTERY OCCLUSION [None]
  - COUGH [None]
  - DIARRHOEA [None]
  - DYSPNOEA [None]
  - HERPES SIMPLEX [None]
  - HYPOTENSION [None]
  - IRON DEFICIENCY ANAEMIA [None]
  - IRRITABLE BOWEL SYNDROME [None]
  - ISCHAEMIC CARDIOMYOPATHY [None]
  - MITRAL VALVE INCOMPETENCE [None]
  - MYOCARDIAL INFARCTION [None]
  - NAUSEA [None]
  - PULMONARY HYPERTENSION [None]
  - PYREXIA [None]
  - RENAL FAILURE CHRONIC [None]
  - SINUS TACHYCARDIA [None]
  - TRICUSPID VALVE INCOMPETENCE [None]
  - VENTRICULAR DYSFUNCTION [None]
